FAERS Safety Report 5695100-2 (Version None)
Quarter: 2008Q2

REPORT INFORMATION
  Report Type: 
  Country: None (occurrence: None)
  Receive Date: 20080404
  Receipt Date: 20080326
  Transmission Date: 20081010
  Serious: Yes (Other)
  Sender: FDA-Public Use
  Company Number: JP-PFIZER INC-2008018540

PATIENT
  Age: 85 Year

DRUGS (1)
  1. CELECOX [Suspect]
     Indication: OSTEOARTHRITIS
     Dosage: DAILY DOSE:200MG
     Route: 048
     Dates: start: 20080221, end: 20080223

REACTIONS (1)
  - CEREBRAL INFARCTION [None]
